FAERS Safety Report 10084770 (Version 1)
Quarter: 2014Q2

REPORT INFORMATION
  Report Type: Spontaneous
  Country: CH (occurrence: None)
  Receive Date: 20140415
  Receipt Date: 20140415
  Transmission Date: 20141212
  Serious: Yes (Other)
  Sender: FDA-Public Use
  Company Number: 20130727

PATIENT
  Age: 75 Year
  Sex: Male
  Weight: 77 kg

DRUGS (4)
  1. VENOFER (IRON SUCROSE INJECTION-VIFOR) (IRON SUCROSE INJECTION) 20 MG/ML [Suspect]
     Indication: PREOPERATIVE CARE
     Dosage: 300 MG, DAY 1, DAY 3
     Route: 041
  2. PERFALGAN (PARACETAMOL) [Concomitant]
  3. MORPHINE [Concomitant]
  4. CEFAZOLIN SODIUM [Concomitant]

REACTIONS (3)
  - Wrong technique in drug usage process [None]
  - Lymphangitis [None]
  - Drug chemical incompatibility [None]
